FAERS Safety Report 5842740-3 (Version None)
Quarter: 2008Q3

REPORT INFORMATION
  Report Type: 
  Country: None (occurrence: None)
  Receive Date: 20080808
  Receipt Date: 20080731
  Transmission Date: 20090109
  Serious: Yes (Hospitalization, Disabling, Other)
  Sender: FDA-Public Use
  Company Number: 08H-163-0314673-00

PATIENT
  Age: 52 Year
  Sex: Male

DRUGS (1)
  1. HYDROMORPHONE HCL [Suspect]
     Indication: ANALGESIC THERAPY
     Dosage: 19.8 NGM DAILY, INTRATHECAL
     Route: 037

REACTIONS (14)
  - ASTHENIA [None]
  - BACK PAIN [None]
  - CLONUS [None]
  - CONDITION AGGRAVATED [None]
  - DRUG INEFFECTIVE [None]
  - GAIT DISTURBANCE [None]
  - GRANULOMA [None]
  - HYPERREFLEXIA [None]
  - HYPOAESTHESIA [None]
  - MOBILITY DECREASED [None]
  - OFF LABEL USE [None]
  - SENSORY DISTURBANCE [None]
  - SPINAL CORD COMPRESSION [None]
  - URINARY RETENTION [None]
